FAERS Safety Report 4384608-8 (Version None)
Quarter: 2004Q2

REPORT INFORMATION
  Report Type: 
  Country: None (occurrence: None)
  Receive Date: 20040625
  Receipt Date: 20040618
  Transmission Date: 20050107
  Serious: Yes (Other)
  Sender: FDA-Public Use
  Company Number: PHBS2004JP08148

PATIENT
  Age: 13 Year
  Sex: Female

DRUGS (2)
  1. ZADITEN [Suspect]
     Indication: URTICARIA
     Dosage: 2 MG/DAY
     Route: 048
     Dates: start: 20040612, end: 20040612
  2. ALIMEZINE [Concomitant]
     Route: 048
     Dates: start: 20040612, end: 20040612

REACTIONS (3)
  - CONVULSION [None]
  - GRAND MAL CONVULSION [None]
  - POSTICTAL PARALYSIS [None]
